FAERS Safety Report 25581349 (Version 1)
Quarter: 2025Q3

REPORT INFORMATION
  Report Type: Spontaneous
  Country: US (occurrence: US)
  Receive Date: 20250718
  Receipt Date: 20250718
  Transmission Date: 20251020
  Serious: No
  Sender: NOVO NORDISK
  Company Number: US-NOVOPROD-1371226

PATIENT
  Sex: Male

DRUGS (1)
  1. WEGOVY [Suspect]
     Active Substance: SEMAGLUTIDE
     Indication: Weight control
     Route: 058
     Dates: start: 202406

REACTIONS (7)
  - Decreased appetite [Unknown]
  - Eructation [Unknown]
  - Weight loss poor [Unknown]
  - Flatulence [Unknown]
  - Abdominal pain upper [Unknown]
  - Injection site pain [Unknown]
  - Injection site mass [Unknown]
